FAERS Safety Report 6690061-1 (Version None)
Quarter: 2010Q2

REPORT INFORMATION
  Report Type: 
  Country: None (occurrence: None)
  Receive Date: 20100421
  Receipt Date: 20100413
  Transmission Date: 20101027
  Serious: Yes (Hospitalization)
  Sender: FDA-Public Use
  Company Number: PHHY2010RU23681

PATIENT
  Age: 54 Year

DRUGS (1)
  1. VOLTAREN [Suspect]
     Route: 030

REACTIONS (3)
  - DERMATITIS [None]
  - INJECTION SITE INFLAMMATION [None]
  - INJECTION SITE NECROSIS [None]
